FAERS Safety Report 18415179 (Version 6)
Quarter: 2020Q4

REPORT INFORMATION
  Report Type: Spontaneous
  Country: PT (occurrence: PT)
  Receive Date: 20201022
  Receipt Date: 20201202
  Transmission Date: 20210114
  Serious: Yes (Hospitalization, Other)
  Sender: FDA-Public Use
  Company Number: PT-AUROBINDO-AUR-APL-2020-050084

PATIENT
  Age: 74 Year
  Sex: Male

DRUGS (1)
  1. GABAPENTIN. [Suspect]
     Active Substance: GABAPENTIN
     Indication: HEADACHE
     Dosage: UNK, (STARTED IN PRECEEDING 2 MONTHS )
     Route: 048

REACTIONS (7)
  - Off label use [Unknown]
  - Asthenia [Recovered/Resolved]
  - Tension headache [Not Recovered/Not Resolved]
  - Pyrexia [Recovered/Resolved]
  - Product use in unapproved indication [Unknown]
  - Prostate cancer [Unknown]
  - Night sweats [Recovered/Resolved]
